FAERS Safety Report 20325631 (Version 4)
Quarter: 2022Q1

REPORT INFORMATION
  Report Type: Spontaneous
  Country: US (occurrence: US)
  Receive Date: 20220112
  Receipt Date: 20220223
  Transmission Date: 20220424
  Serious: Yes (Hospitalization, Other)
  Sender: FDA-Public Use
  Company Number: US-MLMSERVICE-20220103-3298761-1

PATIENT
  Age: 29 Year
  Sex: Female

DRUGS (14)
  1. LIDOCAINE [Suspect]
     Active Substance: LIDOCAINE
     Indication: Cancer pain
     Dosage: 2 MILLIGRAM/KILOGRAM (LOADING DOSE)
     Route: 042
  2. LIDOCAINE [Suspect]
     Active Substance: LIDOCAINE
     Dosage: 1 MILLIGRAM/KILOGRAM, EVERY HOUR
     Route: 042
  3. LIDOCAINE [Suspect]
     Active Substance: LIDOCAINE
     Dosage: 1.6 MILLIGRAM/KILOGRAM, EVERY HOUR
     Route: 042
  4. LIDOCAINE [Suspect]
     Active Substance: LIDOCAINE
     Dosage: 1 MILLIGRAM/KILOGRAM, EVERY HOUR
     Route: 042
  5. BUPIVACAINE HYDROCHLORIDE [Suspect]
     Active Substance: BUPIVACAINE HYDROCHLORIDE
     Indication: Product used for unknown indication
     Dosage: 6.5 MILLIGRAM, ONCE A DAY
     Route: 037
  6. DEXAMETHASONE [Suspect]
     Active Substance: DEXAMETHASONE
     Indication: Product used for unknown indication
     Dosage: 10 MILLIGRAM, ONCE A DAY (EVERY MORNING WAS STARTED ON HD 20)
     Route: 042
  7. DEXAMETHASONE [Suspect]
     Active Substance: DEXAMETHASONE
     Indication: Spinal cord compression
     Dosage: 10 MILLIGRAM, 3 TIMES A DAY (ON HD 25, DEXAMETHASONE WAS INCREASED TO 10 MG IV Q8 HOURS)
     Route: 042
  8. DEXAMETHASONE [Suspect]
     Active Substance: DEXAMETHASONE
     Dosage: UNK UNK, ONCE A DAY
     Route: 065
  9. HYDROMORPHONE [Suspect]
     Active Substance: HYDROMORPHONE
     Indication: Product used for unknown indication
     Dosage: 2.5 MILLIGRAM
     Route: 040
  10. HYDROMORPHONE [Suspect]
     Active Substance: HYDROMORPHONE
     Dosage: 9.8 MILLIGRAM
     Route: 037
  11. OLANZAPINE [Suspect]
     Active Substance: OLANZAPINE
     Indication: Product used for unknown indication
     Dosage: UNK
     Route: 065
  12. KETAMINE [Concomitant]
     Active Substance: KETAMINE
     Indication: Product used for unknown indication
     Dosage: 0.3 MILLIGRAM/KILOGRAM
     Route: 065
  13. LORAZEPAM [Concomitant]
     Active Substance: LORAZEPAM
     Indication: Product used for unknown indication
     Dosage: UNK
     Route: 048
  14. LORAZEPAM [Concomitant]
     Active Substance: LORAZEPAM
     Dosage: UNK
     Route: 042

REACTIONS (6)
  - Hoigne^s syndrome [Recovering/Resolving]
  - Delirium [Recovering/Resolving]
  - Anxiety [Recovering/Resolving]
  - Hypoaesthesia oral [Recovering/Resolving]
  - Somnolence [Unknown]
  - Drug ineffective [Unknown]
